FAERS Safety Report 9346067 (Version 1)
Quarter: 2013Q2

REPORT INFORMATION
  Report Type: Report from Study
  Country: US (occurrence: US)
  Receive Date: 20130613
  Receipt Date: 20130613
  Transmission Date: 20140414
  Serious: Yes (Death, Hospitalization)
  Sender: FDA-Public Use
  Company Number: US-BRISTOL-MYERS SQUIBB COMPANY-14369631

PATIENT
  Age: 47 Year
  Sex: Male

DRUGS (8)
  1. IPILIMUMAB [Suspect]
     Indication: MALIGNANT MELANOMA
     Dosage: DRUG WITHDRAWN ON 07-NOV-08.
     Route: 042
     Dates: start: 20080922, end: 20080922
  2. OXYCONTIN [Concomitant]
     Route: 048
     Dates: start: 20080421
  3. AUGMENTIN [Concomitant]
     Route: 048
  4. PANTOPRAZOLE [Concomitant]
     Dates: start: 20081013
  5. HYDROCORTISONE [Concomitant]
     Dosage: 20MG IN AM?10MG IN AFTERNOON
     Route: 048
     Dates: start: 20081009
  6. POTASSIUM CHLORIDE [Concomitant]
     Dates: start: 20081015
  7. HYDROMORPHONE [Concomitant]
     Dates: start: 20081012
  8. SENNA [Concomitant]
     Dates: start: 20081009

REACTIONS (6)
  - Malignant neoplasm progression [Fatal]
  - Hypotension [Recovered/Resolved]
  - Blood creatinine increased [Recovered/Resolved with Sequelae]
  - Back pain [Recovered/Resolved with Sequelae]
  - Psychotic disorder [Recovered/Resolved]
  - Pneumonia [Recovered/Resolved with Sequelae]
